FAERS Safety Report 5097006-9 (Version None)
Quarter: 2006Q3

REPORT INFORMATION
  Report Type: 
  Country: None (occurrence: None)
  Receive Date: 20060906
  Receipt Date: 20060825
  Transmission Date: 20061208
  Serious: Yes (Hospitalization)
  Sender: FDA-Public Use
  Company Number: PHHO2006JP14232

PATIENT
  Age: 74 Year
  Sex: Female
  Weight: 59 kg

DRUGS (9)
  1. DIOVAN [Suspect]
     Indication: HYPERTENSION
     Dosage: 80 MG / DAY
     Route: 048
     Dates: start: 20030611, end: 20030902
  2. DIOVAN [Suspect]
     Dosage: 160 MG / DAY
     Route: 048
     Dates: start: 20030903, end: 20060531
  3. DORNER [Concomitant]
  4. NORVASC [Concomitant]
  5. BUFFERIN [Concomitant]
  6. PANALDINE [Concomitant]
  7. DETANTOL R [Concomitant]
  8. FLUITRAN [Concomitant]
  9. LIPITOR [Concomitant]

REACTIONS (3)
  - CORONARY ARTERY STENOSIS [None]
  - MYOCARDIAL ISCHAEMIA [None]
  - PERCUTANEOUS CORONARY INTERVENTION [None]
